FAERS Safety Report 20330895 (Version 1)
Quarter: 2022Q1

REPORT INFORMATION
  Report Type: Spontaneous
  Country: CA (occurrence: CA)
  Receive Date: 20220113
  Receipt Date: 20220113
  Transmission Date: 20220423
  Serious: Yes (Life-Threatening, Disabling, Other)
  Sender: FDA-Public Use
  Company Number: None

PATIENT
  Age: 9 Year
  Sex: Male
  Weight: 45 kg

DRUGS (68)
  1. BUSULFAN [Suspect]
     Active Substance: BUSULFAN
     Indication: Acute myeloid leukaemia
     Dosage: 1 EVERY 6 HOURS
     Route: 042
  2. METHOTREXATE [Suspect]
     Active Substance: METHOTREXATE
     Indication: Acute myeloid leukaemia
     Route: 040
  3. ETOPOSIDE [Suspect]
     Active Substance: ETOPOSIDE
     Indication: Acute myeloid leukaemia
     Route: 042
  4. FLUDARABINE [Suspect]
     Active Substance: FLUDARABINE PHOSPHATE
     Indication: Acute myeloid leukaemia
     Route: 042
  5. CYCLOPHOSPHAMIDE [Suspect]
     Active Substance: CYCLOPHOSPHAMIDE
     Indication: Acute myeloid leukaemia
     Route: 042
  6. CYTARABINE [Suspect]
     Active Substance: CYTARABINE
     Indication: Acute myeloid leukaemia
     Route: 042
  7. DAUNORUBICIN HYDROCHLORIDE [Suspect]
     Active Substance: DAUNORUBICIN HYDROCHLORIDE
     Indication: Acute myeloid leukaemia
     Dosage: POWDER FOR?SOLUTION?INTRAVENOUS
     Route: 042
  8. IDARUBICIN [Suspect]
     Active Substance: IDARUBICIN
     Indication: Acute myeloid leukaemia
     Route: 042
  9. ALDESLEUKIN [Suspect]
     Active Substance: ALDESLEUKIN
     Indication: Acute myeloid leukaemia
     Dosage: 1 EVERY 12 HOURS, ?1.26  MILLIINTERNATIONAL UNIT
     Route: 058
  10. INTRON A [Suspect]
     Active Substance: INTERFERON ALFA-2B
     Indication: Acute myeloid leukaemia
     Dosage: SOLUTION INTRAMUSCULAR, 1 EVERY 1 DAYS, 1 MILLII-NTERNATIONAL UNIT
     Route: 058
  11. MITOXANTRONE [Suspect]
     Active Substance: MITOXANTRONE HYDROCHLORIDE
     Indication: Acute myeloid leukaemia
     Dosage: SOLUTION INTRAVENOUS
     Route: 042
  12. ACETAMINOPHEN [Concomitant]
     Active Substance: ACETAMINOPHEN
  13. ACYCLOVIR [Concomitant]
     Active Substance: ACYCLOVIR
  14. ALLOPURINOL [Concomitant]
     Active Substance: ALLOPURINOL
  15. ALTEPLASE [Concomitant]
     Active Substance: ALTEPLASE
     Dosage: LIQUID INTRAVENOUS
  16. AMBISOME [Concomitant]
     Active Substance: AMPHOTERICIN B
     Dosage: POWDER FOR?SOLUTION?INTRAVENOUS
  17. AMOXICILLIN [Concomitant]
     Active Substance: AMOXICILLIN
  18. ATROPINE [Concomitant]
     Active Substance: ATROPINE
  19. CASPOFUNGIN [Concomitant]
     Active Substance: CASPOFUNGIN
  20. CEFOTAXIME [Concomitant]
     Active Substance: CEFOTAXIME SODIUM
  21. CEFTRIAXONE [Concomitant]
     Active Substance: CEFTRIAXONE
     Route: 030
  22. CYCLOSPORINE [Concomitant]
     Active Substance: CYCLOSPORINE
  23. CLOBAZAM [Concomitant]
     Active Substance: CLOBAZAM
  24. DEFIBROTIDE [Concomitant]
     Active Substance: DEFIBROTIDE (BOVINE)
  25. DEXAMETHASONE [Concomitant]
     Active Substance: DEXAMETHASONE
     Dosage: LIQUID INTRA- ARTICULAR
  26. DIAZEPAM [Concomitant]
     Active Substance: DIAZEPAM
  27. DIMENHYDRINATE [Concomitant]
     Active Substance: DIMENHYDRINATE
     Dosage: LIQUID INTRAVENOUS
  28. DOCUSATE SODIUM [Concomitant]
     Active Substance: DOCUSATE SODIUM
  29. FAMOTIDINE [Concomitant]
     Active Substance: FAMOTIDINE
  30. FENTANYL [Concomitant]
     Active Substance: FENTANYL
  31. FILGRASTIM [Concomitant]
     Active Substance: FILGRASTIM
  32. FLUCONAZOLE [Concomitant]
     Active Substance: FLUCONAZOLE
  33. FUROSEMIDE [Concomitant]
     Active Substance: FUROSEMIDE
  34. GRANISETRON [Concomitant]
     Active Substance: GRANISETRON
  35. HEPARIN SODIUM [Concomitant]
     Active Substance: HEPARIN SODIUM
     Dosage: SOLUTION INTRAVENOUS
  36. HYDROCORTISONE [Concomitant]
     Active Substance: HYDROCORTISONE
     Dosage: POWDER FOR?SOLUTION?INTRAMUSCULAR
  37. HYDROXYZINE [Concomitant]
     Active Substance: HYDROXYZINE HYDROCHLORIDE
  38. LEUCOVORIN [Concomitant]
     Active Substance: LEUCOVORIN
  39. LEVETIRACETAM [Concomitant]
     Active Substance: LEVETIRACETAM
  40. LORAZEPAM [Concomitant]
     Active Substance: LORAZEPAM
  41. MEPERIDINE [Concomitant]
     Active Substance: MEPERIDINE
     Dosage: SOLUTION INTRAMUSCULAR
  42. MEROPENEM [Concomitant]
     Active Substance: MEROPENEM
     Dosage: POWDER FOR?SOLUTION?INTRAVENOUS
  43. METHYLPREDNISOLONE [Concomitant]
     Active Substance: METHYLPREDNISOLONE
  44. METOCLOPRAMIDE [Concomitant]
     Active Substance: METOCLOPRAMIDE
  45. METRONIDAZOLE [Concomitant]
     Active Substance: METRONIDAZOLE
  46. MIDAZOLAM [Concomitant]
     Active Substance: MIDAZOLAM
  47. MORPHINE [Concomitant]
     Active Substance: MORPHINE
  48. MESNA [Concomitant]
     Active Substance: MESNA
  49. NALOXONE [Concomitant]
     Active Substance: NALOXONE
  50. NIFEDIPINE [Concomitant]
     Active Substance: NIFEDIPINE
  51. NYSTATIN [Concomitant]
     Active Substance: NYSTATIN
  52. ONDANSETRON [Concomitant]
     Active Substance: ONDANSETRON
  53. PANTOPRAZOLE [Concomitant]
     Active Substance: PANTOPRAZOLE
     Dosage: POWDER FOR?SOLUTION?INTRAVENOUS
  54. PENTAMIDINE ISETHIONATE [Concomitant]
     Active Substance: PENTAMIDINE ISETHIONATE
  55. PHYTONADIONE [Concomitant]
     Active Substance: PHYTONADIONE
  56. PIPERACILLIN AND TAZOBACTAM [Concomitant]
     Active Substance: PIPERACILLIN SODIUM\TAZOBACTAM SODIUM
  57. POTASSIUM [Concomitant]
     Active Substance: POTASSIUM
  58. PROPOFOL [Concomitant]
     Active Substance: PROPOFOL
  59. PROTAMINE SULFATE [Concomitant]
     Active Substance: PROTAMINE SULFATE
     Dosage: SOLUTION INTRAVENOUS
  60. PYRIDOXINE [Concomitant]
     Active Substance: PYRIDOXINE
  61. RANITIDINE [Concomitant]
     Active Substance: RANITIDINE
  62. SODIUM [Concomitant]
     Active Substance: SODIUM
  63. SYNAGIS [Concomitant]
     Active Substance: PALIVIZUMAB
     Dosage: POWDER FOR?SOLUTION?INTRAMUSCULAR
  64. CLAVULANATE POTASSIUM\TICARCILLIN [Concomitant]
     Active Substance: CLAVULANATE POTASSIUM\TICARCILLIN
  65. TOBRAMYCIN [Concomitant]
     Active Substance: TOBRAMYCIN
  66. SULFAMETHOXAZOLE\TRIMETHOPRIM [Concomitant]
     Active Substance: SULFAMETHOXAZOLE\TRIMETHOPRIM
  67. URSODIOL [Concomitant]
     Active Substance: URSODIOL
  68. VANCOMYCIN [Concomitant]
     Active Substance: VANCOMYCIN

REACTIONS (4)
  - Heart transplant [Unknown]
  - Pulmonary hypertension [Unknown]
  - Restrictive cardiomyopathy [Unknown]
  - Off label use [Unknown]
